FAERS Safety Report 10263851 (Version 1)
Quarter: 2014Q2

REPORT INFORMATION
  Report Type: Other
  Country: CA (occurrence: CA)
  Receive Date: 20140627
  Receipt Date: 20140627
  Transmission Date: 20141212
  Serious: Yes (Hospitalization, Other)
  Sender: FDA-Public Use
  Company Number: CA-LUPIN PHARMACEUTICALS INC.-2014-01184

PATIENT
  Age: 59 Year
  Sex: Female

DRUGS (4)
  1. PRAMIPEXOLE [Suspect]
     Indication: PARKINSON^S DISEASE
     Route: 065
  2. QUETIAPINE [Suspect]
     Indication: HALLUCINATION
     Route: 065
  3. CARBIDOPA+LEVODOPA [Concomitant]
     Indication: PARKINSON^S DISEASE
     Route: 065
  4. OXAZEPAM [Concomitant]
     Indication: PARKINSON^S DISEASE
     Route: 065

REACTIONS (3)
  - Hepatic encephalopathy [Recovered/Resolved]
  - Hallucination [Unknown]
  - Acute hepatic failure [Recovered/Resolved]
